FAERS Safety Report 8283246 (Version 3)
Quarter: 2013Q1

REPORT INFORMATION
  Report Type: Spontaneous
  Country: US (occurrence: US)
  Receive Date: 20111210
  Receipt Date: 20130213
  Transmission Date: 20140127
  Serious: Yes (Other)
  Sender: FDA-Public Use
  Company Number: US-ASTRAZENECA-2011SE73350

PATIENT
  Age: 59 Year
  Sex: Female

DRUGS (10)
  1. NEXIUM [Suspect]
     Route: 048
  2. TYLENOL [Concomitant]
     Dosage: 1-2/3 X DAY
  3. ASPIRIN [Concomitant]
     Dosage: 1-2/3 X DAY
  4. METOPROLOL [Concomitant]
  5. SIMVASTM [Concomitant]
  6. ATIVAN [Concomitant]
  7. CALCIUM [Concomitant]
  8. NITRO [Concomitant]
     Dosage: AS NEEDED
  9. PROAIR [Concomitant]
     Dosage: AS NEEDED
  10. ACTIFED [Concomitant]
     Dosage: AS NEEDED

REACTIONS (3)
  - Myocardial infarction [Unknown]
  - Stress [Unknown]
  - Malaise [Unknown]
